FAERS Safety Report 15793370 (Version 1)
Quarter: 2019Q1

REPORT INFORMATION
  Report Type: Spontaneous
  Country: US (occurrence: US)
  Receive Date: 20190104
  Receipt Date: 20190104
  Transmission Date: 20190417
  Serious: Yes (Other)
  Sender: FDA-Public Use
  Company Number: None

PATIENT
  Age: 68 Year
  Sex: Male
  Weight: 87.3 kg

DRUGS (12)
  1. VELCADE [Suspect]
     Active Substance: BORTEZOMIB
     Indication: PLASMA CELL MYELOMA
     Dosage: OTHER FREQUENCY:DAYS 1,4,8,11;?
     Route: 042
     Dates: start: 20181106, end: 20190104
  2. METOPROLOL SUCCINATE ER [Concomitant]
     Active Substance: METOPROLOL SUCCINATE
  3. AMIODARONE HCL [Concomitant]
     Active Substance: AMIODARONE HYDROCHLORIDE
  4. DEXAMETHASONE. [Suspect]
     Active Substance: DEXAMETHASONE
     Indication: PLASMA CELL MYELOMA
     Dosage: ?          OTHER FREQUENCY:DAILY X 21 DAYS;?
     Route: 048
     Dates: start: 20181105, end: 20190104
  5. SUCRALFATE. [Concomitant]
     Active Substance: SUCRALFATE
  6. ATORVASTATIN CALCIUM. [Concomitant]
     Active Substance: ATORVASTATIN CALCIUM
  7. FUROSEMIDE. [Concomitant]
     Active Substance: FUROSEMIDE
  8. LANTUS SOLOSTAR [Concomitant]
     Active Substance: INSULIN GLARGINE
  9. PANTOPRAZOLE SODIUM. [Concomitant]
     Active Substance: PANTOPRAZOLE SODIUM
  10. NITROGLYCERIN. [Concomitant]
     Active Substance: NITROGLYCERIN
  11. ATORVASTATIN CALCIUM. [Concomitant]
     Active Substance: ATORVASTATIN CALCIUM
  12. GLYXAMBI [Concomitant]
     Active Substance: EMPAGLIFLOZIN\LINAGLIPTIN

REACTIONS (2)
  - Hospice care [None]
  - Therapy cessation [None]

NARRATIVE: CASE EVENT DATE: 20190104
